FAERS Safety Report 16327675 (Version 1)
Quarter: 2019Q2

REPORT INFORMATION
  Report Type: Not Available
  Country: US (occurrence: US)
  Receive Date: 20190517
  Receipt Date: 20190517
  Transmission Date: 20190711
  Serious: No
  Sender: FDA-Public Use
  Company Number: US-BAUSCH-BL-2019-014306

PATIENT

DRUGS (1)
  1. TRULANCE [Suspect]
     Active Substance: PLECANATIDE
     Indication: IRRITABLE BOWEL SYNDROME
     Dosage: 3 MG, QD
     Route: 065
     Dates: start: 20180702

REACTIONS (3)
  - Back pain [Unknown]
  - Oropharyngeal pain [Unknown]
  - Dysuria [Unknown]

NARRATIVE: CASE EVENT DATE: 2018
